FAERS Safety Report 16598435 (Version 2)
Quarter: 2019Q3

REPORT INFORMATION
  Report Type: Report from Study
  Country: ID (occurrence: ID)
  Receive Date: 20190719
  Receipt Date: 20190830
  Transmission Date: 20191004
  Serious: Yes (Death, Hospitalization, Other)
  Sender: FDA-Public Use
  Company Number: ID-ASTRAZENECA-2019SE92363

PATIENT
  Sex: Female

DRUGS (1)
  1. TAGRISSO [Suspect]
     Active Substance: OSIMERTINIB
     Indication: NON-SMALL CELL LUNG CANCER
     Route: 048
     Dates: start: 20190507

REACTIONS (8)
  - Headache [Fatal]
  - Pneumonia [Fatal]
  - Dyspnoea [Fatal]
  - Procalcitonin increased [Fatal]
  - Malignant neoplasm progression [Fatal]
  - Platelet count decreased [Fatal]
  - Metastases to central nervous system [Fatal]
  - Malaise [Fatal]
